FAERS Safety Report 8468316-X (Version None)
Quarter: 2012Q2

REPORT INFORMATION
  Report Type: 
  Country: None (occurrence: None)
  Receive Date: 20120626
  Receipt Date: 20110419
  Transmission Date: 20120825
  Serious: Yes (Disabling)
  Sender: FDA-Public Use
  Company Number: US-MUTUAL PHARMACEUTICAL COMPANY, INC.-MTCA20110265

PATIENT
  Sex: 0

DRUGS (2)
  1. REGLAN [Suspect]
     Indication: PRODUCT USED FOR UNKNOWN INDICATION
     Route: 048
  2. METOCLOPRAMIDE [Suspect]
     Indication: PRODUCT USED FOR UNKNOWN INDICATION
     Route: 048

REACTIONS (11)
  - RESTLESS LEGS SYNDROME [None]
  - VISUAL IMPAIRMENT [None]
  - TARDIVE DYSKINESIA [None]
  - AKATHISIA [None]
  - TREMOR [None]
  - NEUROPATHY PERIPHERAL [None]
  - DRUG INTERACTION [None]
  - PARKINSONISM [None]
  - DEPRESSION SUICIDAL [None]
  - CONDITION AGGRAVATED [None]
  - DYSTONIA [None]
